FAERS Safety Report 8410447-4 (Version None)
Quarter: 2012Q2

REPORT INFORMATION
  Report Type: 
  Country: None (occurrence: None)
  Receive Date: 20120529
  Receipt Date: 20000329
  Transmission Date: 20120825
  Serious: Yes (Death, Hospitalization, Other)
  Sender: FDA-Public Use
  Company Number: 02100-USA-00-0129

PATIENT
  Sex: Male

DRUGS (1)
  1. PLETAL [Suspect]
     Dosage: DF DOSAGE FORM, ORAL
     Route: 048
     Dates: start: 19990101

REACTIONS (3)
  - DIZZINESS [None]
  - HIP FRACTURE [None]
  - FALL [None]
